FAERS Safety Report 14619530 (Version 1)
Quarter: 2018Q1

REPORT INFORMATION
  Report Type: Spontaneous
  Country: US (occurrence: US)
  Receive Date: 20180309
  Receipt Date: 20180309
  Transmission Date: 20180509
  Serious: Yes (Hospitalization)
  Sender: FDA-Public Use
  Company Number: US-VIFOR (INTERNATIONAL) INC.-VIT-2018-02291

PATIENT
  Age: 58 Year
  Sex: Female
  Weight: 50.85 kg

DRUGS (7)
  1. VELTASSA [Suspect]
     Active Substance: PATIROMER
  2. TYLENOL [Concomitant]
     Active Substance: ACETAMINOPHEN
  3. PROTONIX [Concomitant]
     Active Substance: PANTOPRAZOLE SODIUM
  4. VITAMINS NOS [Concomitant]
     Active Substance: VITAMINS
  5. VELTASSA [Suspect]
     Active Substance: PATIROMER
     Indication: HYPERKALAEMIA
     Route: 065
     Dates: start: 201711, end: 201802
  6. ACETYLSALICYLIC ACID [Concomitant]
     Active Substance: ASPIRIN
  7. TUMS [Concomitant]
     Active Substance: CALCIUM CARBONATE

REACTIONS (4)
  - Blood potassium decreased [Unknown]
  - Inappropriate schedule of drug administration [Unknown]
  - Feeling abnormal [Unknown]
  - Treatment noncompliance [Unknown]

NARRATIVE: CASE EVENT DATE: 20180227
